FAERS Safety Report 5837087-5 (Version None)
Quarter: 2008Q3

REPORT INFORMATION
  Report Type: 
  Country: None (occurrence: None)
  Receive Date: 20080807
  Receipt Date: 20080118
  Transmission Date: 20090109
  Serious: No
  Sender: FDA-Public Use
  Company Number: A0704014A

PATIENT
  Age: 63 Year

DRUGS (1)
  1. TAGAMET HB 200 [Suspect]
     Dates: start: 20080117

REACTIONS (1)
  - DIARRHOEA [None]
